FAERS Safety Report 9491975 (Version 3)
Quarter: 2013Q4

REPORT INFORMATION
  Report Type: Report from Study
  Country: AU (occurrence: AU)
  Receive Date: 20130830
  Receipt Date: 20131024
  Transmission Date: 20140711
  Serious: Yes (Other)
  Sender: FDA-Public Use
  Company Number: AU-PFIZER INC-2013022539

PATIENT
  Age: 53 Year
  Sex: Male
  Weight: 118 kg

DRUGS (3)
  1. TOFACITINIB CITRATE [Suspect]
     Indication: PSORIASIS
     Dosage: TWO TABLETS, 2X/DAY
     Route: 048
     Dates: start: 20120113, end: 20130207
  2. LIPITOR [Concomitant]
     Indication: HYPERCHOLESTEROLAEMIA
     Dosage: 20 MG, 1X/DAY
     Route: 048
     Dates: start: 20111010
  3. PANADOL [Concomitant]
     Indication: OSTEOARTHRITIS
     Dosage: 1 TABLET, AS NEEDED
     Route: 048
     Dates: start: 201006

REACTIONS (1)
  - Malignant melanoma [Not Recovered/Not Resolved]
